FAERS Safety Report 8438123-2 (Version None)
Quarter: 2012Q2

REPORT INFORMATION
  Report Type: 
  Country: None (occurrence: None)
  Receive Date: 20120614
  Receipt Date: 20120601
  Transmission Date: 20120825
  Serious: Yes (Life-Threatening, Hospitalization)
  Sender: FDA-Public Use
  Company Number: SE-MYLANLABS-2012S1011581

PATIENT
  Age: 40 Year
  Sex: Female

DRUGS (2)
  1. QUETIAPINE [Suspect]
     Indication: SUICIDE ATTEMPT
     Route: 048
  2. SEROQUEL [Suspect]
     Indication: SCHIZOPHRENIA
     Dosage: 900MG DAILY
     Route: 065

REACTIONS (12)
  - SUICIDE ATTEMPT [None]
  - VENTRICULAR TACHYCARDIA [None]
  - METABOLIC ACIDOSIS [None]
  - HYPOTHERMIA [None]
  - OVERDOSE [None]
  - BRADYCARDIA [None]
  - VENTRICULAR FIBRILLATION [None]
  - TOXICITY TO VARIOUS AGENTS [None]
  - CIRCULATORY COLLAPSE [None]
  - COMA [None]
  - HYPOTENSION [None]
  - ELECTROCARDIOGRAM QRS COMPLEX PROLONGED [None]
